FAERS Safety Report 10348217 (Version 1)
Quarter: 2014Q3

REPORT INFORMATION
  Report Type: Spontaneous
  Country: US (occurrence: US)
  Receive Date: 20140729
  Receipt Date: 20140729
  Transmission Date: 20150326
  Serious: Yes (Hospitalization)
  Sender: FDA-Public Use
  Company Number: US-GLAXOSMITHKLINE-A1082517A

PATIENT
  Age: 66 Year
  Sex: Female

DRUGS (20)
  1. ATENOLOL. [Suspect]
     Active Substance: ATENOLOL
     Indication: PRODUCT USED FOR UNKNOWN INDICATION
     Route: 065
  2. PREDNISONE. [Concomitant]
     Active Substance: PREDNISONE
  3. CLARITIN [Concomitant]
     Active Substance: LORATADINE
  4. EYE OINTMENT [Concomitant]
  5. ADVAIR HFA [Suspect]
     Active Substance: FLUTICASONE PROPIONATE\SALMETEROL XINAFOATE
     Indication: ASTHMA
     Dosage: 1PUFF TWICE PER DAY
     Route: 055
     Dates: start: 2012
  6. PROTONIX [Concomitant]
     Active Substance: PANTOPRAZOLE SODIUM
  7. ATENOLOL. [Concomitant]
     Active Substance: ATENOLOL
  8. NASONEX [Concomitant]
     Active Substance: MOMETASONE FUROATE
  9. VITAMIN B [Concomitant]
     Active Substance: VITAMIN B
  10. XARELTO [Concomitant]
     Active Substance: RIVAROXABAN
  11. FLOVENT [Suspect]
     Active Substance: FLUTICASONE PROPIONATE
     Indication: BRONCHITIS
     Route: 055
     Dates: start: 201109, end: 2012
  12. AMLODIPINE [Suspect]
     Active Substance: AMLODIPINE BESYLATE
     Indication: PRODUCT USED FOR UNKNOWN INDICATION
     Route: 065
  13. AMLODIPINE [Concomitant]
     Active Substance: AMLODIPINE BESYLATE
  14. METOPROLOL [Suspect]
     Active Substance: METOPROLOL
     Indication: PRODUCT USED FOR UNKNOWN INDICATION
     Route: 065
  15. PROAIR HFA [Concomitant]
     Active Substance: ALBUTEROL SULFATE
  16. MONTELUKAST [Concomitant]
     Active Substance: MONTELUKAST SODIUM
  17. LACTOBACILLUS ACIDOPHILUS [Concomitant]
     Active Substance: LACTOBACILLUS ACIDOPHILUS
  18. METOPROLOL [Concomitant]
     Active Substance: METOPROLOL
  19. CHLORDIAZEPOXIDE + CLIDINIUM BROMIDE [Concomitant]
  20. DIVALPROEX [Concomitant]
     Active Substance: DIVALPROEX SODIUM

REACTIONS (9)
  - Pneumonia [Recovered/Resolved]
  - Nausea [Unknown]
  - Kidney infection [Recovered/Resolved]
  - Staphylococcal infection [Recovered/Resolved]
  - Pulmonary infarction [Unknown]
  - Blood pressure increased [Unknown]
  - Atrial fibrillation [Recovering/Resolving]
  - Pulmonary mass [Unknown]
  - Pulmonary embolism [Recovered/Resolved]

NARRATIVE: CASE EVENT DATE: 201109
